FAERS Safety Report 8156268-1 (Version None)
Quarter: 2012Q1

REPORT INFORMATION
  Report Type: 
  Country: None (occurrence: None)
  Receive Date: 20120221
  Receipt Date: 20120221
  Transmission Date: 20120608
  Serious: Yes (Other)
  Sender: FDA-Public Use
  Company Number: None

PATIENT
  Age: 84 Year
  Sex: Male

DRUGS (3)
  1. TRIAMETERENE/HCTZ [Concomitant]
  2. SPIRIVA [Suspect]
     Dosage: 1 CAPSULE ONCE DAILY INHALED ORALLY
     Route: 048
  3. DILTIAZEM [Concomitant]

REACTIONS (1)
  - LARYNGEAL DISORDER [None]
